FAERS Safety Report 7732816-8 (Version None)
Quarter: 2011Q3

REPORT INFORMATION
  Report Type: 
  Country: None (occurrence: None)
  Receive Date: 20110902
  Receipt Date: 20110902
  Transmission Date: 20111222
  Serious: Yes (Hospitalization)
  Sender: FDA-Public Use
  Company Number: None

PATIENT
  Sex: Female
  Weight: 77.1115 kg

DRUGS (3)
  1. DENOSUMAB 120 MG S9 [Suspect]
     Indication: RENAL FAILURE
     Dates: start: 20110719
  2. DENOSUMAB 120 MG S9 [Suspect]
     Indication: METASTASES TO BONE
     Dates: start: 20110719
  3. DENOSUMAB 120 MG S9 [Suspect]
     Indication: HYPERCALCAEMIA
     Dates: start: 20110719

REACTIONS (2)
  - HEMIANOPIA [None]
  - EMBOLIC STROKE [None]
